FAERS Safety Report 24200504 (Version 2)
Quarter: 2024Q3

REPORT INFORMATION
  Report Type: Spontaneous
  Country: US (occurrence: US)
  Receive Date: 20240812
  Receipt Date: 20240831
  Transmission Date: 20241017
  Serious: No
  Sender: TEVA
  Company Number: US-TEVA-VS-3228271

PATIENT
  Sex: Male

DRUGS (2)
  1. UZEDY [Suspect]
     Active Substance: RISPERIDONE
     Indication: Schizophrenia
     Route: 065
  2. UZEDY [Suspect]
     Active Substance: RISPERIDONE

REACTIONS (2)
  - Injection site pain [Unknown]
  - Feeling abnormal [Unknown]
